FAERS Safety Report 18702442 (Version 2)
Quarter: 2021Q1

REPORT INFORMATION
  Report Type: Spontaneous
  Country: US (occurrence: US)
  Receive Date: 20210105
  Receipt Date: 20210206
  Transmission Date: 20210419
  Serious: Yes (Other)
  Sender: FDA-Public Use
  Company Number: US-TEVA-2020-US-1863815

PATIENT
  Age: 55 Year
  Sex: Male

DRUGS (8)
  1. MYCOPHENOLATE MOFETIL. [Suspect]
     Active Substance: MYCOPHENOLATE MOFETIL
     Indication: IMMUNOSUPPRESSANT DRUG THERAPY
     Dosage: 3000 MILLIGRAM DAILY;
     Route: 065
     Dates: end: 2015
  2. EVEROLIMUS. [Suspect]
     Active Substance: EVEROLIMUS
     Indication: IMMUNOSUPPRESSANT DRUG THERAPY
     Dosage: 12?HOUR GOAL TROUGH CONCENTRATION OF 5?8 NG/ML
     Route: 065
  3. TACROLIMUS. [Suspect]
     Active Substance: TACROLIMUS
     Indication: IMMUNOSUPPRESSANT DRUG THERAPY
     Dosage: A 12?HOUR GOAL TROUGH CONCENTRATION OF 5?8 NG/ML
     Route: 065
     Dates: start: 2015
  4. EVEROLIMUS. [Suspect]
     Active Substance: EVEROLIMUS
     Dosage: 12?HOUR GOAL TROUGH CONCENTRATION OF 8 NG/ML
     Route: 065
  5. PREDNISONE. [Suspect]
     Active Substance: PREDNISONE
     Dosage: REQUIRED 15?20MG DOSE
     Route: 065
  6. BELATACEPT [Suspect]
     Active Substance: BELATACEPT
     Indication: IMMUNOSUPPRESSANT DRUG THERAPY
     Dosage: 10MG/KG ON DAY 1, 3, AND 5 AND ON WEEKS 2, 4, 8, AND 12 THEN MONTHLY THEREAFTER
     Route: 065
  7. PREDNISONE. [Suspect]
     Active Substance: PREDNISONE
     Indication: IMMUNOSUPPRESSANT DRUG THERAPY
     Dosage: 20 MILLIGRAM DAILY;
     Route: 065
     Dates: start: 2015
  8. EVEROLIMUS. [Suspect]
     Active Substance: EVEROLIMUS
     Dosage: GOAL 12?HOUR TROUGH CONCENTRATION OF 5?7 NG/ML
     Route: 065
     Dates: start: 2018

REACTIONS (8)
  - Interstitial lung disease [Recovering/Resolving]
  - Acute kidney injury [Recovered/Resolved]
  - Diarrhoea [Recovered/Resolved]
  - Hypertension [Unknown]
  - Steroid diabetes [Unknown]
  - Pneumonitis [Recovering/Resolving]
  - Dyslipidaemia [Unknown]
  - Colitis [Unknown]

NARRATIVE: CASE EVENT DATE: 2019
